FAERS Safety Report 22349422 (Version 2)
Quarter: 2023Q2

REPORT INFORMATION
  Report Type: Spontaneous
  Country: US (occurrence: None)
  Receive Date: 20230522
  Receipt Date: 20230626
  Transmission Date: 20230722
  Serious: Yes (Death, Hospitalization, Other)
  Sender: FDA-Public Use
  Company Number: 2023A115517

PATIENT
  Age: 80 Year
  Sex: Male
  Weight: 76.7 kg

DRUGS (3)
  1. LYNPARZA [Suspect]
     Active Substance: OLAPARIB
     Indication: Drug therapy
     Route: 048
     Dates: start: 20230428, end: 20230522
  2. ORGOVYX [Concomitant]
     Active Substance: RELUGOLIX
  3. NUBEQA [Concomitant]
     Active Substance: DAROLUTAMIDE

REACTIONS (5)
  - Transient ischaemic attack [Unknown]
  - Liver function test increased [Fatal]
  - Decreased appetite [Fatal]
  - Fatigue [Fatal]
  - Malignant neoplasm progression [Unknown]
